FAERS Safety Report 9621807 (Version 1)
Quarter: 2013Q4

REPORT INFORMATION
  Report Type: Report from Study
  Country: MX (occurrence: MX)
  Receive Date: 20131015
  Receipt Date: 20131015
  Transmission Date: 20140711
  Serious: Yes (Other)
  Sender: FDA-Public Use
  Company Number: PHHY2013MX115472

PATIENT
  Sex: Female

DRUGS (3)
  1. EXFORGE [Suspect]
     Indication: HYPERTENSION
     Dosage: 1 DF(160/5MG), Q12H
     Route: 048
  2. EXFORGE [Suspect]
     Dosage: 1 DF(160/5MG), DAILY
     Route: 048
  3. EXFORGE [Suspect]
     Dosage: 0.5 DF(160/5MG), Q12H
     Route: 048

REACTIONS (8)
  - Breast cancer [Unknown]
  - Metastases to bone [Unknown]
  - Fluid retention [Recovered/Resolved]
  - Hypotension [Recovered/Resolved]
  - Blood cholesterol abnormal [Unknown]
  - Cardiac disorder [Unknown]
  - Pain [Unknown]
  - Wrong technique in drug usage process [Unknown]
